FAERS Safety Report 4686961-4 (Version None)
Quarter: 2005Q2

REPORT INFORMATION
  Report Type: 
  Country: None (occurrence: None)
  Receive Date: 20050608
  Receipt Date: 20050524
  Transmission Date: 20051028
  Serious: Yes (Hospitalization)
  Sender: FDA-Public Use
  Company Number: B0382926A

PATIENT
  Age: 74 Year
  Sex: Female

DRUGS (12)
  1. LITHIUM CARBONATE [Suspect]
     Indication: BIPOLAR DISORDER
     Dosage: 250 MG / THREE TIMES PER DAY /
  2. LISINOPRIL [Suspect]
     Dosage: SEE DOSAGE TEXT
  3. IRBESARTAN [Suspect]
     Indication: HYPERTENSION
  4. RISPERIDONE [Suspect]
  5. CITALOPRAM (FORMULATION UNKNOWN) (CITALOPRAM) [Suspect]
  6. METHOTRIMEPRAZINE (FORMULATION UNKNOWN) (METHOTRIMEPRAZINE) [Suspect]
  7. LORMETAZEPAM [Concomitant]
  8. METFORMIN HCL [Concomitant]
  9. REPAGLINIDE [Concomitant]
  10. FRUSEMIDE [Concomitant]
  11. SPIRONOLACTONE [Concomitant]
  12. DEXETIMIDE [Concomitant]

REACTIONS (13)
  - AGITATION [None]
  - APATHY [None]
  - CONFUSIONAL STATE [None]
  - DEHYDRATION [None]
  - DIARRHOEA [None]
  - DRUG INTERACTION [None]
  - DYSARTHRIA [None]
  - LETHARGY [None]
  - NEUROTOXICITY [None]
  - OLIGURIA [None]
  - SOMNOLENCE [None]
  - THERAPEUTIC AGENT TOXICITY [None]
  - TREMOR [None]
